FAERS Safety Report 5903930-4 (Version None)
Quarter: 2008Q3

REPORT INFORMATION
  Report Type: 
  Country: None (occurrence: None)
  Receive Date: 20080930
  Receipt Date: 20080923
  Transmission Date: 20090109
  Serious: Yes (Death)
  Sender: FDA-Public Use
  Company Number: US-GILEAD-2008-0018229

PATIENT
  Sex: Male

DRUGS (10)
  1. LETAIRIS [Suspect]
     Indication: PULMONARY HYPERTENSION
     Route: 048
     Dates: start: 20080823
  2. FUROSEMIDE [Concomitant]
     Route: 048
  3. PREDNISONE [Concomitant]
     Route: 048
  4. SPIRIVA [Concomitant]
     Route: 055
  5. BROVANA [Concomitant]
     Route: 055
  6. ALBUTEROL [Concomitant]
  7. DURAGESIC-100 [Concomitant]
  8. MORPHINE SULFATE INJ [Concomitant]
  9. ASPIRIN [Concomitant]
     Route: 048
  10. ATIVAN [Concomitant]

REACTIONS (1)
  - DEATH [None]
